FAERS Safety Report 14305888 (Version 2)
Quarter: 2018Q1

REPORT INFORMATION
  Report Type: Report from Study
  Country: US (occurrence: US)
  Receive Date: 20171219
  Receipt Date: 20180102
  Transmission Date: 20180509
  Serious: Yes (Hospitalization)
  Sender: FDA-Public Use
  Company Number: US-ACTELION-A-NJ2017-158185

PATIENT
  Age: 53 Year
  Sex: Female
  Weight: 68.93 kg

DRUGS (34)
  1. ADCIRCA [Concomitant]
     Active Substance: TADALAFIL
  2. TESSALON [Concomitant]
     Active Substance: BENZONATATE
  3. ATIVAN [Concomitant]
     Active Substance: LORAZEPAM
  4. PROCARDIA [Concomitant]
     Active Substance: NIFEDIPINE
  5. OXYGEN. [Concomitant]
     Active Substance: OXYGEN
  6. VITAMIN C [Concomitant]
     Active Substance: ASCORBIC ACID
  7. ELIQUIS [Concomitant]
     Active Substance: APIXABAN
  8. VITAMIN D3 [Concomitant]
     Active Substance: CHOLECALCIFEROL
  9. FERROUS SULFATE. [Concomitant]
     Active Substance: FERROUS SULFATE
  10. ZOFRAN [Concomitant]
     Active Substance: ONDANSETRON HYDROCHLORIDE
  11. BERAPROST SODIUM [Suspect]
     Active Substance: BERAPROST SODIUM
     Indication: PULMONARY ARTERIAL HYPERTENSION
     Dosage: 2 TAB, QID
     Route: 048
     Dates: start: 20141106
  12. EPIPEN [Concomitant]
     Active Substance: EPINEPHRINE
  13. POTASSIUM BICARBONATE. [Concomitant]
     Active Substance: POTASSIUM BICARBONATE
  14. VELETRI [Suspect]
     Active Substance: EPOPROSTENOL
     Dosage: 37.19 NG/KG, PER MIN
     Route: 042
  15. TYVASO [Suspect]
     Active Substance: TREPROSTINIL
     Indication: PULMONARY HYPERTENSION
     Dosage: 72 MCG, QID
     Route: 055
     Dates: start: 20140708
  16. ASPIRIN. [Concomitant]
     Active Substance: ASPIRIN
  17. OXYCODONE [Concomitant]
     Active Substance: OXYCODONE
  18. TORSEMIDE. [Concomitant]
     Active Substance: TORSEMIDE
  19. LETAIRIS [Suspect]
     Active Substance: AMBRISENTAN
     Dosage: 10 MG, QD
     Route: 048
  20. ORENITRAM [Suspect]
     Active Substance: TREPROSTINIL
     Indication: PRODUCT USED FOR UNKNOWN INDICATION
     Dosage: UNK
     Route: 065
  21. IBUPROFEN. [Concomitant]
     Active Substance: IBUPROFEN
  22. POTASSIUM CHLORIDE. [Concomitant]
     Active Substance: POTASSIUM CHLORIDE
  23. PANTOPRAZOLE [Concomitant]
     Active Substance: PANTOPRAZOLE
  24. VELETRI [Suspect]
     Active Substance: EPOPROSTENOL
     Indication: PULMONARY HYPERTENSION
     Dosage: 22.68 NG/KG, PER MIN
     Route: 042
  25. LETAIRIS [Suspect]
     Active Substance: AMBRISENTAN
     Dosage: UNK
     Route: 048
     Dates: start: 201609
  26. TYVASO [Suspect]
     Active Substance: TREPROSTINIL
     Dosage: 18-72 MCG QID
     Route: 055
     Dates: start: 20141201
  27. ALDACTONE [Concomitant]
     Active Substance: SPIRONOLACTONE
  28. NIFEDIPINE. [Concomitant]
     Active Substance: NIFEDIPINE
  29. LETAIRIS [Suspect]
     Active Substance: AMBRISENTAN
     Indication: PULMONARY ARTERIAL HYPERTENSION
     Dosage: 10 MG, QD
     Route: 048
     Dates: start: 20141022, end: 201609
  30. VENTOLIN HFA [Concomitant]
     Active Substance: ALBUTEROL SULFATE
  31. PRILOSEC [Concomitant]
     Active Substance: OMEPRAZOLE MAGNESIUM
  32. VOLTAREN [Concomitant]
     Active Substance: DICLOFENAC SODIUM
  33. ADVIL [Concomitant]
     Active Substance: IBUPROFEN
  34. MIRALAX [Concomitant]
     Active Substance: POLYETHYLENE GLYCOL 3350

REACTIONS (9)
  - Epistaxis [Unknown]
  - Dyspepsia [Unknown]
  - Headache [Unknown]
  - Peripheral swelling [Unknown]
  - Nasopharyngitis [Unknown]
  - Pneumonia [Unknown]
  - Disease progression [Not Recovered/Not Resolved]
  - Fluid overload [Recovered/Resolved]
  - Pulmonary hypertension [Not Recovered/Not Resolved]

NARRATIVE: CASE EVENT DATE: 201710
